FAERS Safety Report 18154274 (Version 1)
Quarter: 2020Q3

REPORT INFORMATION
  Report Type: Spontaneous
  Country: US (occurrence: US)
  Receive Date: 20200817
  Receipt Date: 20200817
  Transmission Date: 20201103
  Serious: No
  Sender: FDA-Public Use
  Company Number: US-009507513-2008USA001424

PATIENT
  Sex: Female

DRUGS (3)
  1. KEYTRUDA [Suspect]
     Active Substance: PEMBROLIZUMAB
     Dosage: 400 MILLIGRAM, EVERY 6 WEEKS
     Route: 042
  2. KEYTRUDA [Suspect]
     Active Substance: PEMBROLIZUMAB
     Indication: NON-SMALL CELL LUNG CANCER STAGE IV
     Dosage: 200 MILLIGRAM
     Route: 042
  3. ESTROGEN NOS [Concomitant]
     Active Substance: ESTROGENS
     Dosage: 1 MILLIGRAM, QD

REACTIONS (7)
  - Chromaturia [Unknown]
  - Faeces discoloured [Unknown]
  - Sinusitis [Unknown]
  - Decreased appetite [Unknown]
  - Taste disorder [Unknown]
  - Nausea [Unknown]
  - Weight decreased [Unknown]
